FAERS Safety Report 13003153 (Version 1)
Quarter: 2016Q4

REPORT INFORMATION
  Report Type: Spontaneous
  Country: GB (occurrence: GB)
  Receive Date: 20161206
  Receipt Date: 20161206
  Transmission Date: 20170207
  Serious: Yes (Hospitalization, Disabling, Other)
  Sender: FDA-Public Use
  Company Number: GB-MEDA-2016120002

PATIENT
  Age: 78 Year
  Sex: Female

DRUGS (4)
  1. MACROGOL [Concomitant]
     Active Substance: POLYETHYLENE GLYCOLS
  2. SERTRALINE ACTAVIS GROUP [Concomitant]
  3. ESOMEPRAZOLE MAGNESIUM GASTRO-RESISTANT RANBAXY UK [Concomitant]
  4. DYMISTA [Suspect]
     Active Substance: AZELASTINE HYDROCHLORIDE\FLUTICASONE PROPIONATE
     Indication: COUGH
     Dates: start: 20160820, end: 20160825

REACTIONS (6)
  - Rhinalgia [Recovering/Resolving]
  - Application site scab [Recovering/Resolving]
  - Swelling face [Recovering/Resolving]
  - Off label use [Unknown]
  - Facial pain [Recovering/Resolving]
  - Epistaxis [Recovering/Resolving]

NARRATIVE: CASE EVENT DATE: 20160820
